FAERS Safety Report 9813104 (Version 1)
Quarter: 2014Q1

REPORT INFORMATION
  Report Type: Spontaneous
  Country: US (occurrence: None)
  Receive Date: 20140110
  Receipt Date: 20140110
  Transmission Date: 20141002
  Serious: Yes (Other)
  Sender: FDA-Public Use
  Company Number: None

PATIENT
  Age: 31 Year
  Sex: Female
  Weight: 56.25 kg

DRUGS (2)
  1. LEVAQUIN [Suspect]
     Indication: BRONCHITIS
     Dosage: TAKEN BY MOUTH
     Dates: start: 20131216, end: 20131218
  2. LEVAQUIN [Suspect]
     Indication: SINUSITIS
     Dosage: TAKEN BY MOUTH
     Dates: start: 20131216, end: 20131218

REACTIONS (7)
  - Joint swelling [None]
  - Joint swelling [None]
  - Joint swelling [None]
  - Gait disturbance [None]
  - Arthralgia [None]
  - Pain in extremity [None]
  - Local swelling [None]
